FAERS Safety Report 14701438 (Version 3)
Quarter: 2019Q4

REPORT INFORMATION
  Report Type: Spontaneous
  Country: US (occurrence: US)
  Receive Date: 20180330
  Receipt Date: 20191118
  Transmission Date: 20200122
  Serious: No
  Sender: FDA-Public Use
  Company Number: US-PFIZER INC-2018131701

PATIENT
  Age: 74 Year
  Sex: Female

DRUGS (1)
  1. SERTRALINE HCL [Suspect]
     Active Substance: SERTRALINE HYDROCHLORIDE
     Indication: BLOOD PRESSURE ABNORMAL
     Dosage: UNK

REACTIONS (12)
  - Hyperhidrosis [Unknown]
  - Nausea [Unknown]
  - Drug hypersensitivity [Unknown]
  - Off label use [Unknown]
  - Dysstasia [Unknown]
  - Migraine [Unknown]
  - Gait disturbance [Unknown]
  - Vomiting [Unknown]
  - Muscle spasms [Unknown]
  - Insomnia [Unknown]
  - Fatigue [Unknown]
  - Drug ineffective for unapproved indication [Unknown]
